FAERS Safety Report 7797642-2 (Version None)
Quarter: 2011Q4

REPORT INFORMATION
  Report Type: 
  Country: None (occurrence: None)
  Receive Date: 20111005
  Receipt Date: 20110928
  Transmission Date: 20120403
  Serious: Yes (Hospitalization, Other)
  Sender: FDA-Public Use
  Company Number: JP-B.I. PHARMACEUTICALS,INC./RIDGEFIELD-2011-BP-18760NB

PATIENT
  Sex: Female
  Weight: 41.7 kg

DRUGS (3)
  1. CARVEDILOL [Concomitant]
     Dosage: 10 MG
     Route: 065
  2. PRADAXA [Suspect]
     Indication: ATRIAL FIBRILLATION
     Dosage: 220 MG
     Route: 048
     Dates: start: 20110616, end: 20110717
  3. LANSOPRAZOLE [Concomitant]
     Dosage: 15 MG
     Route: 065

REACTIONS (2)
  - SUBDURAL HAEMATOMA [None]
  - LARGE INTESTINE CARCINOMA [None]
